FAERS Safety Report 9790342 (Version 1)
Quarter: 2013Q4

REPORT INFORMATION
  Report Type: Report from Study
  Country: LB (occurrence: LB)
  Receive Date: 20131231
  Receipt Date: 20131231
  Transmission Date: 20140711
  Serious: Yes (Hospitalization)
  Sender: FDA-Public Use
  Company Number: LB-SA-2013SA135160

PATIENT
  Age: 54 Year
  Sex: Male

DRUGS (2)
  1. LANTUS SOLOSTAR [Suspect]
     Indication: DIABETES MELLITUS
     Dosage: DOSE: 30 U IN THE MORNING AND 20 U IN THE EVENING
     Route: 058
     Dates: start: 2013
  2. ASPIRIN [Concomitant]
     Route: 048

REACTIONS (6)
  - Vision blurred [Recovering/Resolving]
  - Wrong technique in drug usage process [Unknown]
  - Fall [Unknown]
  - Hyperglycaemia [Recovering/Resolving]
  - Chills [Recovering/Resolving]
  - Asthenia [Recovering/Resolving]
